FAERS Safety Report 13945245 (Version 1)
Quarter: 2017Q3

REPORT INFORMATION
  Report Type: Spontaneous
  Country: US (occurrence: US)
  Receive Date: 20170907
  Receipt Date: 20170907
  Transmission Date: 20171128
  Serious: Yes (Hospitalization, Other)
  Sender: FDA-Public Use
  Company Number: US-TORRENT-00003341

PATIENT
  Age: 73 Year
  Sex: Female

DRUGS (7)
  1. AMLODIPINE BESILATE [Suspect]
     Active Substance: AMLODIPINE BESYLATE
  2. VALSARTAN. [Suspect]
     Active Substance: VALSARTAN
  3. CARVEDILOL. [Suspect]
     Active Substance: CARVEDILOL
  4. DOXAZOSIN MESILATE [Suspect]
     Active Substance: DOXAZOSIN MESYLATE
  5. HYDROCHLOROTHIAZIDE. [Suspect]
     Active Substance: HYDROCHLOROTHIAZIDE
  6. ATENOLOL. [Suspect]
     Active Substance: ATENOLOL
  7. SPIRONOLACTONE. [Suspect]
     Active Substance: SPIRONOLACTONE

REACTIONS (6)
  - Cardiac failure congestive [Unknown]
  - Drug ineffective [Unknown]
  - Oedema peripheral [Unknown]
  - Intermittent claudication [Recovered/Resolved]
  - Acute kidney injury [Unknown]
  - Headache [Recovered/Resolved]
